FAERS Safety Report 16341585 (Version 3)
Quarter: 2021Q1

REPORT INFORMATION
  Report Type: Report from Study
  Country: US (occurrence: US)
  Receive Date: 20190522
  Receipt Date: 20210129
  Transmission Date: 20210419
  Serious: Yes (Other)
  Sender: FDA-Public Use
  Company Number: PHEH2019US021653

PATIENT
  Sex: Male

DRUGS (1)
  1. KYMRIAH [Suspect]
     Active Substance: TISAGENLECLEUCEL
     Indication: DIFFUSE LARGE B-CELL LYMPHOMA
     Dosage: UNK, ONCE/SINGLE
     Route: 065
     Dates: start: 20190402

REACTIONS (7)
  - Vomiting [Unknown]
  - Pyrexia [Unknown]
  - Monocyte count decreased [Unknown]
  - Platelet count decreased [Unknown]
  - Fatigue [Not Recovered/Not Resolved]
  - Cytokine release syndrome [Unknown]
  - Nausea [Unknown]
